FAERS Safety Report 5705915-X (Version None)
Quarter: 2008Q2

REPORT INFORMATION
  Report Type: 
  Country: None (occurrence: None)
  Receive Date: 20080415
  Receipt Date: 20080404
  Transmission Date: 20081010
  Serious: Yes (Death)
  Sender: FDA-Public Use
  Company Number: US-JNJFOC-20080401441

PATIENT
  Sex: Male

DRUGS (11)
  1. FENTANYL [Suspect]
     Indication: DRUG ABUSE
     Route: 065
  2. XYLAZINE [Suspect]
     Indication: DRUG ABUSE
     Route: 065
  3. HEROIN [Suspect]
     Indication: DRUG ABUSE
     Route: 065
  4. COCAINE [Suspect]
     Indication: DRUG ABUSE
     Route: 065
  5. CODEINE SUL TAB [Suspect]
     Indication: DRUG ABUSE
     Route: 065
  6. DILTIAZEM [Suspect]
     Indication: DRUG USE FOR UNKNOWN INDICATION
     Route: 065
  7. HYDROXYZINE [Suspect]
     Indication: DRUG USE FOR UNKNOWN INDICATION
     Route: 065
  8. LIDOCAINE [Suspect]
     Indication: DRUG ABUSE
     Route: 065
  9. PROCAINE HCL [Suspect]
     Indication: DRUG ABUSE
     Route: 065
  10. IBUPROFEN [Suspect]
     Route: 065
  11. IBUPROFEN [Suspect]
     Indication: DRUG USE FOR UNKNOWN INDICATION
     Route: 065

REACTIONS (2)
  - DRUG ABUSE [None]
  - DRUG TOXICITY [None]
